FAERS Safety Report 24899164 (Version 1)
Quarter: 2025Q1

REPORT INFORMATION
  Report Type: Spontaneous
  Country: US (occurrence: None)
  Receive Date: 20250129
  Receipt Date: 20250129
  Transmission Date: 20250409
  Serious: Yes (Hospitalization)
  Sender: FDA-CTU
  Company Number: None

PATIENT
  Age: 45 Year
  Sex: Female
  Weight: 57.61 kg

DRUGS (3)
  1. WINREVAIR [Suspect]
     Active Substance: SOTATERCEPT-CSRK
     Indication: Pulmonary arterial hypertension
     Dates: start: 202412
  2. REMODULIN [Suspect]
     Active Substance: TREPROSTINIL
  3. TREPROSTINIL [Concomitant]
     Active Substance: TREPROSTINIL

REACTIONS (3)
  - Hypoxia [None]
  - Cough [None]
  - Respiratory tract congestion [None]

NARRATIVE: CASE EVENT DATE: 20250128
